FAERS Safety Report 13013809 (Version 1)
Quarter: 2016Q4

REPORT INFORMATION
  Report Type: Spontaneous
  Country: GB (occurrence: GB)
  Receive Date: 20161209
  Receipt Date: 20161209
  Transmission Date: 20170207
  Serious: Yes (Death, Other)
  Sender: FDA-Public Use
  Company Number: GB-JNJFOC-20161205574

PATIENT

DRUGS (2)
  1. IBRUTINIB [Suspect]
     Active Substance: IBRUTINIB
     Indication: CHRONIC LYMPHOCYTIC LEUKAEMIA
     Route: 048
  2. IBRUTINIB [Suspect]
     Active Substance: IBRUTINIB
     Indication: CHRONIC LYMPHOCYTIC LEUKAEMIA
     Route: 048

REACTIONS (14)
  - Liver function test abnormal [Unknown]
  - Arthralgia [Unknown]
  - Mouth ulceration [Unknown]
  - Haemorrhage [Fatal]
  - Gastrointestinal toxicity [Fatal]
  - Skin disorder [Unknown]
  - Cardiac disorder [Fatal]
  - Neoplasm malignant [Unknown]
  - Cardiac failure [Unknown]
  - Contusion [Unknown]
  - Cytopenia [Unknown]
  - Neuropathy peripheral [Unknown]
  - Infection [Fatal]
  - Atrial fibrillation [Unknown]
